FAERS Safety Report 26054196 (Version 1)
Quarter: 2025Q4

REPORT INFORMATION
  Report Type: Spontaneous
  Country: US (occurrence: US)
  Receive Date: 20251117
  Receipt Date: 20251117
  Transmission Date: 20260118
  Serious: Yes (Other)
  Sender: ABBVIE
  Company Number: US-ABBVIE-6515963

PATIENT
  Age: 79 Year
  Sex: Female
  Weight: 85.728 kg

DRUGS (2)
  1. REFRESH PLUS [Suspect]
     Active Substance: CARBOXYMETHYLCELLULOSE SODIUM
     Indication: Dry eye
     Dosage: PRESERVATIVE FREE, FORM STRENGTH: 1 DROP?OPHTHALMIC
     Route: 065
     Dates: start: 20251017, end: 20251105
  2. REFRESH CLASSIC [Suspect]
     Active Substance: POLYVINYL ALCOHOL\POVIDONE
     Indication: Product used for unknown indication
     Dosage: PRESERVATIVE FREE?OPHTHALMIC
     Route: 065

REACTIONS (5)
  - Macular degeneration [Not Recovered/Not Resolved]
  - Eye irritation [Unknown]
  - Abdominal discomfort [Not Recovered/Not Resolved]
  - Vision blurred [Unknown]
  - Productive cough [Not Recovered/Not Resolved]

NARRATIVE: CASE EVENT DATE: 20250101
